FAERS Safety Report 17242035 (Version 1)
Quarter: 2020Q1

REPORT INFORMATION
  Report Type: Spontaneous
  Country: CN (occurrence: CN)
  Receive Date: 20200107
  Receipt Date: 20200107
  Transmission Date: 20200409
  Serious: Yes (Other)
  Sender: FDA-Public Use
  Company Number: NVSC2020CN001351

PATIENT
  Age: 19 Year
  Sex: Male

DRUGS (2)
  1. BROMOCRIPTINE [Suspect]
     Active Substance: BROMOCRIPTINE
     Dosage: 6.25 MG, QD
     Route: 065
  2. BROMOCRIPTINE [Suspect]
     Active Substance: BROMOCRIPTINE
     Indication: PROLACTIN-PRODUCING PITUITARY TUMOUR
     Dosage: 15 MG, QD
     Route: 065

REACTIONS (1)
  - Cerebrospinal fluid leakage [Recovering/Resolving]
